FAERS Safety Report 20648094 (Version 2)
Quarter: 2022Q2

REPORT INFORMATION
  Report Type: Report from Study
  Country: DE (occurrence: DE)
  Receive Date: 20220329
  Receipt Date: 20220505
  Transmission Date: 20220720
  Serious: Yes (Other)
  Sender: FDA-Public Use
  Company Number: DE-NOVARTISPH-NVSC2022DE069360

PATIENT
  Sex: Female
  Weight: 69 kg

DRUGS (27)
  1. COSENTYX [Suspect]
     Active Substance: SECUKINUMAB
     Indication: Ankylosing spondylitis
     Dosage: 150 MG, ONCE/SINGLE(PRE FILLED PEN)
     Route: 065
     Dates: start: 20210116, end: 20210116
  2. COSENTYX [Suspect]
     Active Substance: SECUKINUMAB
     Dosage: 150 MG, ONCE/SINGLE(PRE FILLED PEN)
     Route: 065
     Dates: start: 20210123, end: 20210123
  3. COSENTYX [Suspect]
     Active Substance: SECUKINUMAB
     Dosage: 150 MG, ONCE/SINGLE(PRE FILLED PEN)
     Route: 065
     Dates: start: 20210130, end: 20210130
  4. COSENTYX [Suspect]
     Active Substance: SECUKINUMAB
     Dosage: 150 MG, ONCE/SINGLE(PRE FILLED PEN)
     Route: 065
     Dates: start: 20210206, end: 20210206
  5. COSENTYX [Suspect]
     Active Substance: SECUKINUMAB
     Dosage: 150 MG, ONCE/SINGLE(PRE FILLED PEN)
     Route: 065
     Dates: start: 20210213, end: 20210213
  6. COSENTYX [Suspect]
     Active Substance: SECUKINUMAB
     Dosage: 150 MG, ONCE/SINGLE(PRE FILLED PEN)
     Route: 065
     Dates: start: 20210313, end: 20210313
  7. COSENTYX [Suspect]
     Active Substance: SECUKINUMAB
     Dosage: 150 MG, ONCE/SINGLE(PRE FILLED PEN)
     Route: 065
     Dates: start: 20210410, end: 20210410
  8. COSENTYX [Suspect]
     Active Substance: SECUKINUMAB
     Dosage: 150 MG, ONCE/SINGLE(PRE FILLED PEN)
     Route: 065
     Dates: start: 20210508, end: 20210508
  9. COSENTYX [Suspect]
     Active Substance: SECUKINUMAB
     Dosage: 150 MG, ONCE/SINGLE(PRE FILLED SYRINGE)
     Route: 065
     Dates: start: 20210605, end: 20210605
  10. COSENTYX [Suspect]
     Active Substance: SECUKINUMAB
     Dosage: 150 MG, ONCE/SINGLE(PRE FILLED PEN)
     Route: 065
     Dates: start: 20210703, end: 20210703
  11. COSENTYX [Suspect]
     Active Substance: SECUKINUMAB
     Dosage: 300 MG, ONCE/SINGLE(PRE FILLED PEN)
     Route: 065
     Dates: start: 20210731, end: 20210731
  12. COSENTYX [Suspect]
     Active Substance: SECUKINUMAB
     Dosage: 300 MG, ONCE/SINGLE(PRE FILLED PEN)
     Route: 065
     Dates: start: 20210828, end: 20210828
  13. COSENTYX [Suspect]
     Active Substance: SECUKINUMAB
     Dosage: 300 MG, ONCE/SINGLE(PRE FILLED PEN)
     Route: 065
     Dates: start: 20210925, end: 20210925
  14. COSENTYX [Suspect]
     Active Substance: SECUKINUMAB
     Dosage: 300 MG, ONCE/SINGLE(PRE FILLED PEN)
     Route: 065
     Dates: start: 20211023, end: 20211023
  15. COSENTYX [Suspect]
     Active Substance: SECUKINUMAB
     Dosage: 300 MG, ONCE/SINGLE(PRE FILLED PEN)
     Route: 065
     Dates: start: 20211120, end: 20211120
  16. COSENTYX [Suspect]
     Active Substance: SECUKINUMAB
     Dosage: 300 MG, ONCE/SINGLE(PRE FILLED PEN)
     Route: 065
     Dates: start: 20211218, end: 20211218
  17. COSENTYX [Suspect]
     Active Substance: SECUKINUMAB
     Dosage: 300 MG, ONCE/SINGLE(PRE FILLED PEN)
     Route: 065
     Dates: start: 20220115, end: 20220115
  18. COSENTYX [Suspect]
     Active Substance: SECUKINUMAB
     Dosage: 300 MG, ONCE/SINGLE(PRE FILLED PEN)
     Route: 065
     Dates: start: 20220212, end: 20220212
  19. LEVOTHYROXINE [Concomitant]
     Active Substance: LEVOTHYROXINE
     Indication: Goitre
     Dosage: 50 UG, QD
     Route: 048
  20. PANTOPRAZOLE [Concomitant]
     Active Substance: PANTOPRAZOLE
     Indication: Gastric disorder
     Dosage: 40 MG, PRN (AS NEEDED)
     Route: 048
  21. RAMIPRIL [Concomitant]
     Active Substance: RAMIPRIL
     Indication: Blood pressure decreased
     Dosage: 5 MG, QD
     Route: 048
  22. HYDROCHLOROTHIAZIDE [Concomitant]
     Active Substance: HYDROCHLOROTHIAZIDE
     Indication: Blood pressure decreased
     Dosage: 25 MG, QD
     Route: 048
  23. METOPROLOL [Concomitant]
     Active Substance: METOPROLOL
     Indication: Product used for unknown indication
     Dosage: 47.5 MG, QD
     Route: 048
  24. IBUPROFEN [Concomitant]
     Active Substance: IBUPROFEN
     Indication: Ankylosing spondylitis
     Dosage: 600 MG, PRN (AS NEEDED)
     Route: 048
  25. AMITRIPTYLINE [Concomitant]
     Active Substance: AMITRIPTYLINE
     Indication: Fibromyalgia
     Dosage: 25 MG, QD
     Route: 048
  26. ATORVASTATIN [Concomitant]
     Active Substance: ATORVASTATIN
     Indication: Product used for unknown indication
     Dosage: 20 MG, QD
     Route: 048
  27. METAMIZOLE [Concomitant]
     Active Substance: METAMIZOLE
     Indication: Pain
     Dosage: UNK UNK, PRN (AS NEEDED)
     Route: 048

REACTIONS (1)
  - Uveitis [Recovered/Resolved]

NARRATIVE: CASE EVENT DATE: 20211201
